FAERS Safety Report 4569934-1 (Version None)
Quarter: 2005Q1

REPORT INFORMATION
  Report Type: 
  Country: None (occurrence: None)
  Receive Date: 20050204
  Receipt Date: 20050118
  Transmission Date: 20050727
  Serious: Yes (Other)
  Sender: FDA-Public Use
  Company Number: NZ-JNJFOC-20050106235

PATIENT
  Age: 49 Year
  Sex: Female

DRUGS (15)
  1. REMICADE [Suspect]
     Dosage: THIS WAS HER THIRD INFUSION.
     Route: 042
     Dates: start: 20041101
  2. REMICADE [Suspect]
     Route: 042
     Dates: start: 20041101
  3. REMICADE [Suspect]
     Indication: RHEUMATOID ARTHRITIS
     Route: 042
     Dates: start: 20041101
  4. PREDNISONE [Concomitant]
     Dosage: LONGSTANDING USE
     Route: 049
  5. FOSAMAX [Concomitant]
     Dosage: LONGSTANDING USE
     Route: 049
  6. OSTEO [Concomitant]
     Route: 049
  7. OSTEO [Concomitant]
     Route: 049
  8. OSTEO [Concomitant]
     Route: 049
  9. OSTEO [Concomitant]
     Route: 049
  10. OSTEO [Concomitant]
     Dosage: LONGSTANDING USE
     Route: 049
  11. CALCIFEROL [Concomitant]
     Dosage: LONGSTANDING USE
     Route: 049
  12. METHOTREXATE [Concomitant]
     Dosage: LONGSTANDING USE
     Route: 049
  13. FOLIC ACID [Concomitant]
     Dosage: LONGSTANDING USE
     Route: 049
  14. INHIBACE [Concomitant]
     Dosage: LONGSTANDING USE
     Route: 049
  15. DILTIAZEM [Concomitant]
     Dosage: LONGSTANDING USE
     Route: 049

REACTIONS (3)
  - LUPUS-LIKE SYNDROME [None]
  - RASH [None]
  - SEBORRHOEIC DERMATITIS [None]
